FAERS Safety Report 5008665-0 (Version None)
Quarter: 2006Q2

REPORT INFORMATION
  Report Type: 
  Country: None (occurrence: None)
  Receive Date: 20060523
  Receipt Date: 20060419
  Transmission Date: 20061013
  Serious: Yes (Hospitalization)
  Sender: FDA-Public Use
  Company Number: JP-JPN-A200601303

PATIENT
  Age: 81 Year
  Sex: Male

DRUGS (2)
  1. VALTREX [Suspect]
     Indication: HERPES ZOSTER
     Dosage: 1000MG THREE TIMES PER DAY
     Route: 048
     Dates: start: 20060413, end: 20060415
  2. ALLELOCK [Concomitant]
     Indication: ECZEMA
     Dosage: 10MG PER DAY
     Route: 048
     Dates: start: 20041102, end: 20060415

REACTIONS (7)
  - BLOOD CREATININE INCREASED [None]
  - BLOOD UREA INCREASED [None]
  - DECREASED APPETITE [None]
  - DIZZINESS [None]
  - MALAISE [None]
  - RENAL FAILURE ACUTE [None]
  - SECONDARY HYPERTENSION [None]
